FAERS Safety Report 5622450-8 (Version None)
Quarter: 2008Q1

REPORT INFORMATION
  Report Type: 
  Country: None (occurrence: None)
  Receive Date: 20080211
  Receipt Date: 20080130
  Transmission Date: 20080703
  Serious: Yes (Death, Hospitalization, Other)
  Sender: FDA-Public Use
  Company Number: JP-PFIZER INC-2008001124

PATIENT
  Age: 80 Year
  Sex: Male
  Weight: 68 kg

DRUGS (1)
  1. METHYLPREDNISOLONE 16MG TAB [Suspect]
     Indication: RADIATION PNEUMONITIS
     Dosage: DAILY DOSE:30MG
     Route: 048

REACTIONS (4)
  - ACUTE RESPIRATORY DISTRESS SYNDROME [None]
  - HERPES OESOPHAGITIS [None]
  - MALIGNANT NEOPLASM PROGRESSION [None]
  - OESOPHAGEAL CANDIDIASIS [None]
